FAERS Safety Report 7793303-4 (Version None)
Quarter: 2011Q4

REPORT INFORMATION
  Report Type: 
  Country: None (occurrence: None)
  Receive Date: 20111003
  Receipt Date: 20110928
  Transmission Date: 20120403
  Serious: Yes (Life-Threatening, Hospitalization)
  Sender: FDA-Public Use
  Company Number: NL-AMGEN-NLDSP2011049983

PATIENT
  Age: 83 Year
  Sex: Male
  Weight: 84 kg

DRUGS (2)
  1. CYKLOKAPRON [Concomitant]
     Dosage: 1500 MG, TID
     Dates: end: 20110823
  2. NPLATE [Suspect]
     Indication: IDIOPATHIC THROMBOCYTOPENIC PURPURA
     Dosage: 340 MUG, UNK
     Dates: start: 20110719, end: 20110827

REACTIONS (1)
  - PULMONARY EMBOLISM [None]
